FAERS Safety Report 18637645 (Version 2)
Quarter: 2020Q4

REPORT INFORMATION
  Report Type: Report from Study
  Country: BR (occurrence: BR)
  Receive Date: 20201218
  Receipt Date: 20201230
  Transmission Date: 20210114
  Serious: Yes (Other)
  Sender: FDA-Public Use
  Company Number: NVSC2020BR334068

PATIENT
  Age: 49 Year
  Sex: Male
  Weight: 105 kg

DRUGS (1)
  1. COSENTYX [Suspect]
     Active Substance: SECUKINUMAB
     Indication: PSORIATIC ARTHROPATHY
     Dosage: 300 MG, QMO
     Route: 065
     Dates: start: 2018, end: 202010

REACTIONS (10)
  - Red blood cells urine positive [Unknown]
  - Haemorrhage [Not Recovered/Not Resolved]
  - Psoriatic arthropathy [Unknown]
  - Renal cyst [Unknown]
  - Pigmentation disorder [Not Recovered/Not Resolved]
  - Skin disorder [Not Recovered/Not Resolved]
  - Back pain [Not Recovered/Not Resolved]
  - Blood urea abnormal [Unknown]
  - Blood creatine phosphokinase increased [Unknown]
  - Nephropathy [Unknown]

NARRATIVE: CASE EVENT DATE: 20190826
